FAERS Safety Report 9851297 (Version 3)
Quarter: 2014Q2

REPORT INFORMATION
  Report Type: Report from Study
  Country: US (occurrence: US)
  Receive Date: 20140129
  Receipt Date: 20140416
  Transmission Date: 20141212
  Serious: Yes (Other)
  Sender: FDA-Public Use
  Company Number: US-ROCHE-1303193

PATIENT
  Sex: Male

DRUGS (4)
  1. NUTROPIN AQ [Suspect]
     Indication: BODY HEIGHT BELOW NORMAL
     Dosage: 7 DAYS/WEEK
     Route: 058
  2. NUTROPIN AQ [Suspect]
     Route: 058
     Dates: end: 20140121
  3. NUTROPIN AQ [Suspect]
     Route: 058
     Dates: start: 20140121
  4. CONCERTA [Concomitant]

REACTIONS (8)
  - Glycosylated haemoglobin increased [Unknown]
  - Headache [Recovered/Resolved]
  - Injection site pain [Unknown]
  - Abdominal pain upper [Unknown]
  - Constipation [Unknown]
  - Arthralgia [Not Recovered/Not Resolved]
  - Eye injury [Unknown]
  - Blindness unilateral [Unknown]
